FAERS Safety Report 9207887 (Version 1)
Quarter: 2013Q2

REPORT INFORMATION
  Report Type: Spontaneous
  Country: US (occurrence: US)
  Receive Date: 20130403
  Receipt Date: 20130403
  Transmission Date: 20140414
  Serious: Yes (Other)
  Sender: FDA-Public Use
  Company Number: US-ENDO PHARMACEUTICALS INC.-AMLO20130008

PATIENT
  Age: 80 Year
  Sex: Female
  Weight: 72.19 kg

DRUGS (1)
  1. AMLODIPINE BESYLATE [Suspect]
     Indication: HYPERTENSION
     Route: 048
     Dates: start: 20130326, end: 20130326

REACTIONS (2)
  - Blindness transient [Recovered/Resolved]
  - Blood pressure increased [Recovered/Resolved]
